FAERS Safety Report 8355113-9 (Version None)
Quarter: 2012Q2

REPORT INFORMATION
  Report Type: 
  Country: None (occurrence: None)
  Receive Date: 20120511
  Receipt Date: 20120507
  Transmission Date: 20120825
  Serious: Yes (Congenital Anomaly)
  Sender: FDA-Public Use
  Company Number: MX-BAXTER-2012BAX005098

PATIENT
  Sex: Male

DRUGS (4)
  1. CYCLOPHOSPHAMIDE [Suspect]
     Route: 064
     Dates: start: 20021111
  2. CYCLOPHOSPHAMIDE [Suspect]
     Route: 064
     Dates: start: 20030111
  3. CYCLOPHOSPHAMIDE [Suspect]
     Route: 064
     Dates: start: 20021211
  4. PREDNISONE TAB [Suspect]
     Route: 064

REACTIONS (2)
  - KLIPPEL-FEIL SYNDROME [None]
  - FOETAL EXPOSURE DURING PREGNANCY [None]
